FAERS Safety Report 16819792 (Version 1)
Quarter: 2019Q3

REPORT INFORMATION
  Report Type: Spontaneous
  Country: CN (occurrence: CN)
  Receive Date: 20190917
  Receipt Date: 20190917
  Transmission Date: 20191005
  Serious: Yes (Hospitalization)
  Sender: FDA-Public Use
  Company Number: CN-ASTRAZENECA-2019SE82339

PATIENT
  Age: 27021 Day
  Sex: Male
  Weight: 75.5 kg

DRUGS (1)
  1. ROSUVASTATIN CALCIUM. [Suspect]
     Active Substance: ROSUVASTATIN CALCIUM
     Indication: ARTERIOSCLEROSIS
     Route: 048
     Dates: start: 20181024, end: 20190514

REACTIONS (3)
  - Liver disorder [Recovering/Resolving]
  - Hepatic function abnormal [Recovering/Resolving]
  - Hepatitis viral [Recovering/Resolving]

NARRATIVE: CASE EVENT DATE: 20190514
